FAERS Safety Report 9273842 (Version 1)
Quarter: 2013Q2

REPORT INFORMATION
  Report Type: Spontaneous
  Country: US (occurrence: US)
  Receive Date: 20130506
  Receipt Date: 20130506
  Transmission Date: 20140414
  Serious: Yes (Hospitalization, Other)
  Sender: FDA-Public Use
  Company Number: US-009507513-1305USA000858

PATIENT
  Age: 46 Year
  Sex: Male

DRUGS (1)
  1. VICTRELIS [Suspect]
     Indication: CHRONIC HEPATITIS
     Dosage: 800 MG, TID
     Route: 048
     Dates: start: 20130425, end: 20130429

REACTIONS (2)
  - Oesophageal haemorrhage [Unknown]
  - Surgery [Unknown]
